FAERS Safety Report 5310807-4 (Version None)
Quarter: 2007Q2

REPORT INFORMATION
  Report Type: 
  Country: None (occurrence: None)
  Receive Date: 20070428
  Receipt Date: 20070416
  Transmission Date: 20071010
  Serious: Yes (Death, Other)
  Sender: FDA-Public Use
  Company Number: CA-PFIZER INC-2007011675

PATIENT
  Age: 88 Year
  Sex: Male

DRUGS (1)
  1. SUTENT [Suspect]
     Indication: RENAL CELL CARCINOMA STAGE UNSPECIFIED
     Route: 048

REACTIONS (9)
  - BRAIN NEOPLASM [None]
  - BRAIN OEDEMA [None]
  - CEREBRAL HAEMORRHAGE [None]
  - DISEASE PROGRESSION [None]
  - GASTROINTESTINAL NEOPLASM [None]
  - METASTASES TO BONE [None]
  - PULMONARY THROMBOSIS [None]
  - TUMOUR NECROSIS [None]
  - WEIGHT DECREASED [None]
